FAERS Safety Report 24938234 (Version 1)
Quarter: 2025Q1

REPORT INFORMATION
  Report Type: Spontaneous
  Country: DE (occurrence: DE)
  Receive Date: 20250206
  Receipt Date: 20250206
  Transmission Date: 20250408
  Serious: Yes (Other)
  Sender: NOVARTIS
  Company Number: DE-ARISTO PHARMA-CARBA2019042312

PATIENT

DRUGS (1)
  1. CARBAMAZEPINE [Suspect]
     Active Substance: CARBAMAZEPINE
     Indication: Epilepsy
     Route: 065

REACTIONS (3)
  - Toxic epidermal necrolysis [Unknown]
  - Overlap syndrome [Unknown]
  - Stevens-Johnson syndrome [Unknown]
